FAERS Safety Report 19992356 (Version 2)
Quarter: 2022Q1

REPORT INFORMATION
  Report Type: Report from Study
  Country: CA (occurrence: CA)
  Receive Date: 20211026
  Receipt Date: 20220308
  Transmission Date: 20220423
  Serious: Yes (Other)
  Sender: FDA-Public Use
  Company Number: CA-UCBSA-2021049428

PATIENT
  Age: 69 Year
  Sex: Male

DRUGS (2)
  1. CERTOLIZUMAB PEGOL [Suspect]
     Active Substance: CERTOLIZUMAB PEGOL
     Indication: Ankylosing spondylitis
     Dosage: 400 MILLIGRAM, EV 2 WEEKS(QOW)
     Route: 058
     Dates: start: 20160311
  2. CERTOLIZUMAB PEGOL [Suspect]
     Active Substance: CERTOLIZUMAB PEGOL
     Dosage: 200 MILLIGRAM, EV 2 WEEKS(QOW)
     Route: 058
     Dates: end: 20220201

REACTIONS (8)
  - Cholecystectomy [Recovered/Resolved]
  - Pulmonary embolism [Unknown]
  - Sepsis [Unknown]
  - Renal disorder [Unknown]
  - Renal neoplasm [Unknown]
  - Surgery [Unknown]
  - Aneurysm [Unknown]
  - Aneurysm repair [Unknown]

NARRATIVE: CASE EVENT DATE: 20210801
